FAERS Safety Report 15687069 (Version 1)
Quarter: 2018Q4

REPORT INFORMATION
  Report Type: Spontaneous
  Country: US (occurrence: US)
  Receive Date: 20181204
  Receipt Date: 20181204
  Transmission Date: 20190205
  Serious: No
  Sender: FDA-Public Use
  Company Number: US-009507513-1811USA008935

PATIENT
  Age: 34 Year
  Sex: Female
  Weight: 58.96 kg

DRUGS (5)
  1. TRAMADOL HYDROCHLORIDE. [Concomitant]
     Active Substance: TRAMADOL HYDROCHLORIDE
  2. KLONOPIN [Concomitant]
     Active Substance: CLONAZEPAM
  3. NEXPLANON [Suspect]
     Active Substance: ETONOGESTREL
     Indication: CONTRACEPTION
     Dosage: LEFT ARM, EVERY THREE YEARS
     Route: 059
     Dates: start: 20180222
  4. CITALOPRAM [Concomitant]
     Active Substance: CITALOPRAM HYDROBROMIDE
  5. METOPROLOL. [Concomitant]
     Active Substance: METOPROLOL

REACTIONS (1)
  - Amenorrhoea [Recovered/Resolved]

NARRATIVE: CASE EVENT DATE: 20180222
